FAERS Safety Report 5106952-9 (Version None)
Quarter: 2006Q3

REPORT INFORMATION
  Report Type: 
  Country: None (occurrence: None)
  Receive Date: 20060913
  Receipt Date: 20060823
  Transmission Date: 20061208
  Serious: Yes (Hospitalization)
  Sender: FDA-Public Use
  Company Number: AU200608006140

PATIENT
  Sex: Female

DRUGS (2)
  1. GEMZAR [Suspect]
     Indication: BREAST CANCER METASTATIC
  2. PACLITAXEL [Concomitant]

REACTIONS (6)
  - BLOOD ALBUMIN DECREASED [None]
  - CAPILLARY LEAK SYNDROME [None]
  - OEDEMA [None]
  - RASH [None]
  - RENAL FAILURE [None]
  - VASCULITIS [None]
